FAERS Safety Report 8310785-X (Version None)
Quarter: 2012Q2

REPORT INFORMATION
  Report Type: 
  Country: None (occurrence: None)
  Receive Date: 20120425
  Receipt Date: 20120423
  Transmission Date: 20120825
  Serious: Yes (Death)
  Sender: FDA-Public Use
  Company Number: BG-ROCHE-1062764

PATIENT
  Sex: Female
  Weight: 88.5 kg

DRUGS (4)
  1. VERAPAMIL [Concomitant]
     Dates: start: 20090101
  2. XELODA [Suspect]
     Indication: BREAST CANCER
     Dosage: D1 TO D14 EVERY 3 WEEKS
     Route: 048
     Dates: start: 20101208, end: 20110717
  3. DIROTON [Concomitant]
     Route: 048
     Dates: start: 20090101
  4. DIHYDROCODEINE BITARTRATE INJ [Concomitant]
     Dates: start: 20101217

REACTIONS (1)
  - SUDDEN DEATH [None]
